FAERS Safety Report 9039216 (Version 1)
Quarter: 2013Q1

REPORT INFORMATION
  Report Type: Report from Study
  Country: US (occurrence: US)
  Receive Date: 20130129
  Receipt Date: 20130129
  Transmission Date: 20140127
  Serious: Yes (Hospitalization)
  Sender: FDA-Public Use
  Company Number: US-ABBOTT-12P-163-0909444-00

PATIENT
  Age: 31 None
  Sex: Female

DRUGS (11)
  1. HUMIRA 40 MG/0.8 ML PEN [Suspect]
     Indication: CROHN^S DISEASE
     Route: 050
     Dates: start: 20111123
  2. IMURAN [Suspect]
     Indication: CROHN^S DISEASE
     Dates: start: 201202, end: 201202
  3. ASACOL [Concomitant]
     Indication: CROHN^S DISEASE
  4. GENERIC FLONASE [Concomitant]
     Indication: HYPERSENSITIVITY
     Dosage: 2 SPRAYS EACH NOSTRIL DAILY
  5. CETIRIZINE [Concomitant]
     Indication: HYPERSENSITIVITY
  6. RANITIDINE [Concomitant]
     Indication: DYSPEPSIA
  7. PROBIOTIC [Concomitant]
     Indication: PRODUCT USED FOR UNKNOWN INDICATION
  8. TILIA FE [Concomitant]
     Indication: CONTRACEPTION
  9. TYLENOL [Concomitant]
     Indication: PAIN
  10. TYLENOL [Concomitant]
     Indication: PAIN
  11. PREDNISONE [Concomitant]
     Indication: PRODUCT USED FOR UNKNOWN INDICATION
     Dosage: 20 MG DAILY

REACTIONS (19)
  - Pancreatitis [Recovered/Resolved]
  - Clostridium difficile infection [Recovered/Resolved]
  - Oral herpes [Unknown]
  - Injection site bruising [Not Recovered/Not Resolved]
  - Lymphadenopathy [Unknown]
  - Diarrhoea [Unknown]
  - Pain [Unknown]
  - Crohn^s disease [Unknown]
  - Injection site pain [Unknown]
  - Injection site pain [Unknown]
  - Lethargy [Unknown]
  - Arthralgia [Unknown]
  - Anxiety [Recovered/Resolved]
  - Panic attack [Recovered/Resolved]
  - Anxiety [Recovered/Resolved]
  - Panic attack [Recovered/Resolved]
  - Injection site haemorrhage [Unknown]
  - Frequent bowel movements [Unknown]
  - Haematochezia [Unknown]
